FAERS Safety Report 8361028-2 (Version None)
Quarter: 2012Q2

REPORT INFORMATION
  Report Type: 
  Country: None (occurrence: None)
  Receive Date: 20120515
  Receipt Date: 20120510
  Transmission Date: 20120825
  Serious: Yes (Hospitalization, Other)
  Sender: FDA-Public Use
  Company Number: PHHY2012BR029899

PATIENT
  Sex: Female

DRUGS (3)
  1. DIOVAN [Suspect]
     Dosage: 1 TABLET (UNKNOWN MG) PER DAY
  2. DIOVAN [Suspect]
     Dosage: 2 TABLETS (160 MG) PER DAY
  3. DIOVAN [Suspect]
     Indication: HYPERTENSION
     Dosage: 1 TABLET (160 MG) PER DAY

REACTIONS (15)
  - BLOOD UREA DECREASED [None]
  - LUMBAR VERTEBRAL FRACTURE [None]
  - RENAL IMPAIRMENT [None]
  - COLITIS [None]
  - CEREBROVASCULAR ACCIDENT [None]
  - PNEUMONIA [None]
  - SPEECH DISORDER [None]
  - LUNG DISORDER [None]
  - BLOOD POTASSIUM DECREASED [None]
  - DIABETES MELLITUS INADEQUATE CONTROL [None]
  - DYSSTASIA [None]
  - HAEMORRHAGE [None]
  - ABASIA [None]
  - BLOOD PRESSURE INADEQUATELY CONTROLLED [None]
  - CARDIAC ARREST [None]
